FAERS Safety Report 13395051 (Version 3)
Quarter: 2018Q1

REPORT INFORMATION
  Report Type: Spontaneous
  Country: FR (occurrence: FR)
  Receive Date: 20170403
  Receipt Date: 20180322
  Transmission Date: 20180508
  Serious: Yes (Other)
  Sender: FDA-Public Use
  Company Number: FR-009507513-1703FRA014055

PATIENT
  Age: 40 Year
  Sex: Female
  Weight: 65 kg

DRUGS (1)
  1. NEXPLANON [Suspect]
     Active Substance: ETONOGESTREL
     Dosage: 1 DF, IN THE LEFT ARM
     Route: 059
     Dates: start: 201703, end: 201703

REACTIONS (2)
  - Implant site abscess [Recovered/Resolved]
  - General anaesthesia [Recovered/Resolved]

NARRATIVE: CASE EVENT DATE: 201703
